FAERS Safety Report 20645592 (Version 1)
Quarter: 2022Q1

REPORT INFORMATION
  Report Type: Spontaneous
  Country: US (occurrence: US)
  Receive Date: 20220328
  Receipt Date: 20220328
  Transmission Date: 20220423
  Serious: No
  Sender: FDA-Public Use
  Company Number: US-TEVA-2022-US-2014368

PATIENT
  Age: 73 Year
  Sex: Male

DRUGS (1)
  1. QVAR REDIHALER [Suspect]
     Active Substance: BECLOMETHASONE DIPROPIONATE
     Indication: Cough variant asthma
     Route: 065

REACTIONS (3)
  - Cough [Unknown]
  - Middle insomnia [Unknown]
  - Insomnia [Unknown]
